FAERS Safety Report 5890109-8 (Version None)
Quarter: 2008Q3

REPORT INFORMATION
  Report Type: 
  Country: None (occurrence: None)
  Receive Date: 20080919
  Receipt Date: 20080831
  Transmission Date: 20090109
  Serious: No
  Sender: FDA-Public Use
  Company Number: US-B.I. PHARMACEUTICALS,INC./RIDGEFIELD-2008-BP-13979BP

PATIENT
  Sex: Female

DRUGS (3)
  1. ZANTAC 150 [Suspect]
     Indication: DYSPEPSIA
     Dosage: 450MG
     Route: 048
     Dates: start: 20080801
  2. SYNTHROID [Concomitant]
     Indication: THYROID DISORDER
     Dosage: .1MG
     Route: 048
  3. NIFEDIPINE [Concomitant]
     Dosage: 60MG
     Route: 048

REACTIONS (1)
  - NAUSEA [None]
